FAERS Safety Report 18877379 (Version 1)
Quarter: 2021Q1

REPORT INFORMATION
  Report Type: Spontaneous
  Country: US (occurrence: US)
  Receive Date: 20210210
  Receipt Date: 20210210
  Transmission Date: 20210420
  Serious: Yes (Hospitalization)
  Sender: FDA-Public Use
  Company Number: None

PATIENT
  Age: 72 Year
  Sex: Male
  Weight: 151 kg

DRUGS (1)
  1. GENTAMICIN (GENTAMICIN SO4 80MG/VIL INJ) [Suspect]
     Active Substance: GENTAMICIN SULFATE
     Dates: start: 20210111, end: 20210115

REACTIONS (2)
  - Renal tubular necrosis [None]
  - Acute kidney injury [None]

NARRATIVE: CASE EVENT DATE: 20210121
